FAERS Safety Report 5746097-8 (Version None)
Quarter: 2008Q2

REPORT INFORMATION
  Report Type: 
  Country: None (occurrence: None)
  Receive Date: 20080522
  Receipt Date: 20080313
  Transmission Date: 20081010
  Serious: No
  Sender: FDA-Public Use
  Company Number: A0715259A

PATIENT
  Age: 37 Year
  Sex: Female

DRUGS (3)
  1. BACTROBAN [Suspect]
     Dosage: 1APP UNKNOWN
     Route: 045
     Dates: start: 20080301
  2. BACTROBAN [Suspect]
     Dosage: 1APP UNKNOWN
     Route: 045
     Dates: start: 20080309
  3. REFRESH EYE DROPS [Concomitant]

REACTIONS (4)
  - EYE DISORDER [None]
  - NASAL OEDEMA [None]
  - OCULAR HYPERAEMIA [None]
  - RHINALGIA [None]
